FAERS Safety Report 4378438-0 (Version None)
Quarter: 2004Q2

REPORT INFORMATION
  Report Type: 
  Country: None (occurrence: None)
  Receive Date: 20040609
  Receipt Date: 20040526
  Transmission Date: 20050107
  Serious: Yes (Death)
  Sender: FDA-Public Use
  Company Number: S04-USA-02237-01

PATIENT
  Age: 35 Year
  Sex: Female

DRUGS (7)
  1. LEXAPRO [Suspect]
     Indication: DEPRESSION
     Dosage: 10 MG QD PO
     Route: 048
     Dates: start: 20030801, end: 20031201
  2. LEXAPRO [Suspect]
     Indication: DEPRESSION
     Dosage: 10 MG QD PO
     Route: 048
     Dates: start: 20031201, end: 20040217
  3. LEXAPRO [Suspect]
     Indication: DEPRESSION
     Dosage: 10 MG QD PO
     Route: 048
     Dates: start: 20040221, end: 20040223
  4. XANAX [Concomitant]
  5. VALIUM [Concomitant]
  6. VICODIN [Concomitant]
  7. SPINAL EPIDERMAL INJECTIONS [Concomitant]

REACTIONS (5)
  - ABNORMAL BEHAVIOUR [None]
  - ALCOHOL USE [None]
  - COMPLETED SUICIDE [None]
  - GUN SHOT WOUND [None]
  - TREATMENT NONCOMPLIANCE [None]
